FAERS Safety Report 22241330 (Version 1)
Quarter: 2023Q2

REPORT INFORMATION
  Report Type: Spontaneous
  Country: JP (occurrence: JP)
  Receive Date: 20230421
  Receipt Date: 20230421
  Transmission Date: 20230721
  Serious: Yes (Other)
  Sender: FDA-Public Use
  Company Number: JP-002147023-NVSJ2023JP006467

PATIENT
  Age: 75 Year

DRUGS (2)
  1. CYCLOSPORINE [Suspect]
     Active Substance: CYCLOSPORINE
     Indication: Psoriatic arthropathy
     Dosage: 75 MG
     Route: 048
  2. CYCLOSPORINE [Suspect]
     Active Substance: CYCLOSPORINE
     Dosage: 25 MG
     Route: 048

REACTIONS (2)
  - Renal impairment [Not Recovered/Not Resolved]
  - Product use in unapproved indication [Unknown]
